FAERS Safety Report 6171638-9 (Version None)
Quarter: 2009Q2

REPORT INFORMATION
  Report Type: 
  Country: None (occurrence: None)
  Receive Date: 20090424
  Receipt Date: 20081217
  Transmission Date: 20091009
  Serious: No
  Sender: FDA-Public Use
  Company Number: SPV1-2008-02641

PATIENT
  Age: 36 Year
  Sex: Female
  Weight: 68 kg

DRUGS (3)
  1. VYVANSE [Suspect]
     Indication: ATTENTION DEFICIT/HYPERACTIVITY DISORDER
     Dosage: 30 MG, 1X/DAY, QD, ORAL, 20 MG, 1X/DAY; QD, ORAL
     Route: 048
     Dates: start: 20081101, end: 20080101
  2. VYVANSE [Suspect]
     Indication: ATTENTION DEFICIT/HYPERACTIVITY DISORDER
     Dosage: 30 MG, 1X/DAY, QD, ORAL, 20 MG, 1X/DAY; QD, ORAL
     Route: 048
     Dates: start: 20080101
  3. XANAX [Concomitant]

REACTIONS (1)
  - ANXIETY [None]
